FAERS Safety Report 6753934-7 (Version None)
Quarter: 2010Q2

REPORT INFORMATION
  Report Type: 
  Country: None (occurrence: None)
  Receive Date: 20100603
  Receipt Date: 20100528
  Transmission Date: 20101027
  Serious: Yes (Hospitalization)
  Sender: FDA-Public Use
  Company Number: A0793317A

PATIENT
  Age: 58 Year
  Sex: Female

DRUGS (8)
  1. AVANDIA [Suspect]
     Indication: DIABETES MELLITUS
     Dosage: 4MG PER DAY
     Route: 048
     Dates: start: 20050807, end: 20070612
  2. RISPERDAL [Concomitant]
  3. PREVACID [Concomitant]
  4. LEXAPRO [Concomitant]
  5. PRAVACHOL [Concomitant]
  6. METFORMIN [Concomitant]
  7. COZAAR [Concomitant]
  8. ALBUTEROL [Concomitant]

REACTIONS (1)
  - CEREBROVASCULAR ACCIDENT [None]
